FAERS Safety Report 9271330 (Version 3)
Quarter: 2013Q3

REPORT INFORMATION
  Report Type: Spontaneous
  Country: US (occurrence: US)
  Receive Date: 20130506
  Receipt Date: 20130703
  Transmission Date: 20140515
  Serious: No
  Sender: FDA-Public Use
  Company Number: US-PFIZER INC-2013136735

PATIENT
  Age: 9 Year
  Sex: Male

DRUGS (6)
  1. QUILLIVANT XR [Suspect]
     Indication: ATTENTION DEFICIT/HYPERACTIVITY DISORDER
     Dosage: 4 ML, 1X/DAY IN THE MORNING
     Route: 048
     Dates: start: 20130219, end: 201302
  2. QUILLIVANT XR [Suspect]
     Dosage: 6 ML, 1X/DAY IN THE MORNING
     Route: 048
     Dates: start: 201302, end: 201303
  3. QUILLIVANT XR [Suspect]
     Dosage: 8 ML, 1X/DAY IN THE MORNING
     Route: 048
     Dates: start: 201203, end: 20130327
  4. VYVANSE [Suspect]
     Dosage: UNK
     Dates: end: 20130219
  5. CALTRATE [Concomitant]
     Dosage: UNK
  6. KAPVAY [Concomitant]
     Indication: ATTENTION DEFICIT/HYPERACTIVITY DISORDER
     Dosage: 0.1 MG, UNK
     Dates: start: 20120328

REACTIONS (2)
  - Pruritus [Recovering/Resolving]
  - Abnormal behaviour [Recovered/Resolved]
